FAERS Safety Report 5890182-7 (Version None)
Quarter: 2008Q3

REPORT INFORMATION
  Report Type: 
  Country: None (occurrence: None)
  Receive Date: 20080919
  Receipt Date: 20080909
  Transmission Date: 20090109
  Serious: Yes (Other)
  Sender: FDA-Public Use
  Company Number: US-PFIZER INC-2008075936

PATIENT
  Sex: Male

DRUGS (2)
  1. CHANTIX [Suspect]
     Indication: SMOKING CESSATION THERAPY
     Route: 048
     Dates: start: 20080801, end: 20080801
  2. ANTIPSYCHOTICS [Concomitant]

REACTIONS (3)
  - ABNORMAL BEHAVIOUR [None]
  - BIPOLAR DISORDER [None]
  - MOOD ALTERED [None]
